FAERS Safety Report 8404117 (Version 2)
Quarter: 2012Q4

REPORT INFORMATION
  Report Type: 
  Country: US (occurrence: US)
  Receive Date: 20111227
  Receipt Date: 20121127
  Transmission Date: 20130627
  Serious: Yes (Life-Threatening)
  Sender: FDA-Public Use
  Company Number: PHEH2011US009641

PATIENT
  Age: 54 Year
  Sex: Female

DRUGS (2)
  1. GILENYA [Suspect]
     Indication: MULTIPLE SCLEROSIS
     Dosage: 1 DF, QD
     Route: 048
     Dates: start: 201104, end: 201205
  2. GILENYA [Suspect]
     Dosage: 1 DF, QD
     Route: 048
     Dates: start: 201207

REACTIONS (3)
  - Encephalitis [Recovering/Resolving]
  - Diarrhoea [Recovering/Resolving]
  - Post procedural complication [None]
